FAERS Safety Report 6628021-9 (Version None)
Quarter: 2010Q1

REPORT INFORMATION
  Report Type: 
  Country: None (occurrence: None)
  Receive Date: 20100311
  Receipt Date: 20090619
  Transmission Date: 20100710
  Serious: No
  Sender: FDA-Public Use
  Company Number: A0792475A

PATIENT
  Age: 48 Year
  Sex: Male

DRUGS (1)
  1. NICORETTE [Suspect]

REACTIONS (7)
  - DRUG ADMINISTRATION ERROR [None]
  - DYSGEUSIA [None]
  - EXPIRED DRUG ADMINISTERED [None]
  - HYPOAESTHESIA ORAL [None]
  - MUSCULAR WEAKNESS [None]
  - PARAESTHESIA ORAL [None]
  - UPPER RESPIRATORY TRACT INFECTION [None]
